FAERS Safety Report 12687152 (Version 1)
Quarter: 2016Q3

REPORT INFORMATION
  Report Type: Spontaneous
  Country: ES (occurrence: ES)
  Receive Date: 20160825
  Receipt Date: 20160825
  Transmission Date: 20161109
  Serious: Yes (Hospitalization)
  Sender: FDA-Public Use
  Company Number: ES-FRESENIUS KABI-FK201605717

PATIENT
  Age: 49 Year
  Sex: Male

DRUGS (4)
  1. DIPYRONE [Suspect]
     Active Substance: DIPYRONE
     Indication: INFLUENZA
     Route: 048
  2. GEMFIBROZIL. [Suspect]
     Active Substance: GEMFIBROZIL
  3. VALSARTAN. [Suspect]
     Active Substance: VALSARTAN
     Indication: HYPERTRIGLYCERIDAEMIA
  4. PARACETAMOL (MANUFACTURER UNKNOWN) [Suspect]
     Active Substance: ACETAMINOPHEN
     Indication: ANALGESIC THERAPY

REACTIONS (1)
  - Acute kidney injury [Recovered/Resolved]
